FAERS Safety Report 9837964 (Version 1)
Quarter: 2014Q1

REPORT INFORMATION
  Report Type: Spontaneous
  Country: GB (occurrence: GB)
  Receive Date: 20140123
  Receipt Date: 20140123
  Transmission Date: 20141002
  Serious: Yes (Other)
  Sender: FDA-Public Use
  Company Number: GB-NOVOPROD-397686

PATIENT
  Age: 51 Year
  Sex: Female
  Weight: 53 kg

DRUGS (4)
  1. KLIOFEM [Suspect]
     Indication: DEPRESSION
     Dosage: 2 MG
     Route: 048
     Dates: start: 20131213
  2. LEVOTHYROXINE [Concomitant]
  3. LITHIUM CARBONATE [Concomitant]
  4. SEROQUEL [Concomitant]
     Dosage: UNK

REACTIONS (6)
  - Skin sensitisation [Unknown]
  - Dry skin [Unknown]
  - Skin irritation [Unknown]
  - Breast tenderness [Unknown]
  - Breast pain [Unknown]
  - Pruritus [Unknown]
